FAERS Safety Report 24843101 (Version 1)
Quarter: 2025Q1

REPORT INFORMATION
  Report Type: Report from Study
  Country: US (occurrence: US)
  Receive Date: 20250115
  Receipt Date: 20250115
  Transmission Date: 20250408
  Serious: No
  Sender: HRA PHARMA
  Company Number: US-ORG100014127-2024000085

PATIENT
  Age: 23 Year
  Sex: Female

DRUGS (1)
  1. LYSODREN [Suspect]
     Active Substance: MITOTANE
     Indication: Adrenal gland cancer
     Dosage: 2 TABLETS IN MORNING AND 1 IN AFTERNOON
     Route: 048

REACTIONS (3)
  - Retching [Unknown]
  - Product use complaint [Unknown]
  - Wrong technique in product usage process [Unknown]
